FAERS Safety Report 13831101 (Version 1)
Quarter: 2017Q3

REPORT INFORMATION
  Report Type: Spontaneous
  Country: GB (occurrence: GB)
  Receive Date: 20170803
  Receipt Date: 20170803
  Transmission Date: 20171127
  Serious: Yes (Hospitalization, Other)
  Sender: FDA-Public Use
  Company Number: GB-TEVA-791787ACC

PATIENT
  Age: 74 Year
  Sex: Female
  Weight: 54.6 kg

DRUGS (14)
  1. PREDNISOLONE. [Concomitant]
     Active Substance: PREDNISOLONE
     Dosage: 6 DOSAGE FORMS DAILY;
     Dates: start: 20170511
  2. SERTRALINE [Concomitant]
     Active Substance: SERTRALINE HYDROCHLORIDE
     Dosage: 50 MILLIGRAM DAILY;
     Dates: start: 20170512, end: 20170713
  3. FOSTAIR [Concomitant]
     Active Substance: BECLOMETHASONE\FORMOTEROL
     Dosage: 4 DOSAGE FORMS DAILY;
     Route: 055
     Dates: start: 20170511
  4. SLOZEM [Concomitant]
     Active Substance: DILTIAZEM
     Dosage: 360 MILLIGRAM DAILY; 240 MG AND 120MG
     Dates: start: 20170511
  5. DOXAZOSIN [Concomitant]
     Active Substance: DOXAZOSIN\DOXAZOSIN MESYLATE
     Dosage: 2 MILLIGRAM DAILY; MORNING
     Dates: start: 20170607
  6. BRALTUS [Concomitant]
     Dosage: 10 MICROGRAM DAILY; MORNING
     Route: 055
     Dates: start: 20170511
  7. PARACETAMOL [Concomitant]
     Active Substance: ACETAMINOPHEN
     Dosage: 1 TO 2 TABLETS UP TO FOUR TIMES DAILY AS REQUIRED
     Dates: start: 20170713
  8. DOXYCYCLINE. [Concomitant]
     Active Substance: DOXYCYCLINE
     Dosage: TWO NOW THEN ONE DAILY
     Dates: start: 20170511
  9. RANITIDINE. [Concomitant]
     Active Substance: RANITIDINE
     Dosage: 300 MILLIGRAM DAILY;
     Dates: start: 20170713
  10. TIOTROPIUM [Concomitant]
     Active Substance: TIOTROPIUM
     Dosage: 18 MICROGRAM DAILY;
     Route: 055
     Dates: start: 20170511
  11. VENTOLIN [Concomitant]
     Active Substance: ALBUTEROL SULFATE
     Dosage: 1-2 PUFF WHEN REQUIRED 4-6 HOURLY
     Dates: start: 20170511
  12. INDAPAMIDE MODIFIED-RELEASE TABLET [Suspect]
     Active Substance: INDAPAMIDE
     Dosage: 1.5 MG AND 2.5 MG
     Dates: start: 20170301, end: 20170625
  13. OMEPRAZOLE   GASTRO-RESISTANT CAPSULE [Concomitant]
     Active Substance: OMEPRAZOLE
     Dosage: 20 MILLIGRAM DAILY;
     Dates: start: 20170511
  14. RAMIPRIL. [Concomitant]
     Active Substance: RAMIPRIL
     Dosage: 1 DOSAGE FORMS DAILY; 5MG AND 10 MG CAPSULES
     Dates: start: 20170511

REACTIONS (4)
  - Inappropriate antidiuretic hormone secretion [Recovering/Resolving]
  - Syncope [Unknown]
  - Unresponsive to stimuli [Unknown]
  - Hyponatraemia [Unknown]

NARRATIVE: CASE EVENT DATE: 20170625
